FAERS Safety Report 7599822 (Version 4)
Quarter: 2015Q4

REPORT INFORMATION
  Report Type: Spontaneous
  Country: US (occurrence: US)
  Receive Date: 20100921
  Receipt Date: 20151023
  Transmission Date: 20160305
  Serious: Yes (Hospitalization, Other)
  Sender: FDA-Public Use
  Company Number: US-BAYER-201034016NA

PATIENT
  Age: 27 Year
  Sex: Female
  Weight: 90.7 kg

DRUGS (8)
  1. OXYCODONE W/PARACETAMOL [Concomitant]
     Active Substance: ACETAMINOPHEN\OXYCODONE HYDROCHLORIDE
     Indication: PRODUCT USED FOR UNKNOWN INDICATION
     Dosage: UNK
     Dates: start: 20060820
  2. OCELLA [Suspect]
     Active Substance: DROSPIRENONE\ETHINYL ESTRADIOL
     Indication: VAGINAL HAEMORRHAGE
     Dosage: UNK
     Dates: start: 1998, end: 2006
  3. IBUPROFEN. [Concomitant]
     Active Substance: IBUPROFEN
     Dosage: 800 MG TID (THREE TIMES A DAY
     Route: 048
     Dates: start: 20051021
  4. METFORMIN [Concomitant]
     Active Substance: METFORMIN HYDROCHLORIDE
     Indication: PRODUCT USED FOR UNKNOWN INDICATION
  5. TRAMADOL. [Concomitant]
     Active Substance: TRAMADOL
     Indication: PRODUCT USED FOR UNKNOWN INDICATION
     Dosage: UNK
     Dates: start: 20060820
  6. YAZ [Suspect]
     Active Substance: DROSPIRENONE\ETHINYL ESTRADIOL
     Indication: VAGINAL HAEMORRHAGE
     Dosage: UNK
     Route: 048
     Dates: start: 200605, end: 20080815
  7. YASMIN [Suspect]
     Active Substance: DROSPIRENONE\ETHINYL ESTRADIOL
     Indication: VAGINAL HAEMORRHAGE
     Dosage: UNK
     Route: 048
     Dates: start: 1998, end: 2006
  8. METHERGINE [Concomitant]
     Active Substance: METHYLERGONOVINE MALEATE
     Dosage: 0.2 MG Q 6H (HOURS)
     Route: 048
     Dates: start: 20051021

REACTIONS (8)
  - Abdominal pain [None]
  - Nausea [None]
  - Cholecystitis chronic [None]
  - Pain [None]
  - Cholelithiasis [None]
  - Vomiting [None]
  - Biliary colic [None]
  - Weight decreased [None]

NARRATIVE: CASE EVENT DATE: 200609
